FAERS Safety Report 5134462-1 (Version None)
Quarter: 2006Q4

REPORT INFORMATION
  Report Type: 
  Country: None (occurrence: None)
  Receive Date: 20061025
  Receipt Date: 20060807
  Transmission Date: 20070319
  Serious: Yes (Hospitalization)
  Sender: FDA-Public Use
  Company Number: JP-AVENTIS-200612483JP

PATIENT
  Age: 62 Year
  Sex: Female
  Weight: 48 kg

DRUGS (7)
  1. ALLEGRA [Suspect]
     Indication: SINUSITIS
     Route: 048
     Dates: start: 20060705, end: 20060707
  2. ALLEGRA [Suspect]
     Route: 048
     Dates: start: 20060709, end: 20060714
  3. CLARITHROMYCIN [Suspect]
     Indication: SINUSITIS
     Route: 048
     Dates: start: 20060705, end: 20060707
  4. CLARITHROMYCIN [Suspect]
     Route: 048
     Dates: start: 20060709, end: 20060714
  5. MUCOSTA [Concomitant]
     Route: 048
     Dates: start: 20060705, end: 20060707
  6. MUCOSTA [Concomitant]
     Route: 048
     Dates: start: 20060709, end: 20060714
  7. METHYCOBAL                         /00324901/ [Concomitant]
     Route: 048
     Dates: start: 20060623

REACTIONS (10)
  - ABDOMINAL PAIN UPPER [None]
  - EPIGASTRIC DISCOMFORT [None]
  - GASTRITIS [None]
  - HEPATIC FUNCTION ABNORMAL [None]
  - JAUNDICE [None]
  - LIVER DISORDER [None]
  - LYMPHADENOPATHY [None]
  - REFLUX OESOPHAGITIS [None]
  - SPLENOMEGALY [None]
  - VOMITING [None]
